FAERS Safety Report 7964485-6 (Version None)
Quarter: 2011Q4

REPORT INFORMATION
  Report Type: 
  Country: None (occurrence: None)
  Receive Date: 20111208
  Receipt Date: 20111130
  Transmission Date: 20120403
  Serious: Yes (Other)
  Sender: FDA-Public Use
  Company Number: US-US-EMD SERONO, INC.-7099191

PATIENT
  Sex: Female

DRUGS (4)
  1. UNSPECIFIED ANTI-DEPRESSANT MEDICATION [Concomitant]
     Indication: ANTIDEPRESSANT THERAPY
  2. REBIF [Suspect]
     Indication: MULTIPLE SCLEROSIS
     Route: 058
     Dates: start: 20110901
  3. UNSPECIFIED  ANTI-ANXIETY MEDICATION [Concomitant]
     Indication: ANXIETY
  4. REBIF [Suspect]
     Route: 058

REACTIONS (4)
  - FATIGUE [None]
  - SUICIDAL BEHAVIOUR [None]
  - DEPRESSION [None]
  - INFLUENZA LIKE ILLNESS [None]
